FAERS Safety Report 19751793 (Version 5)
Quarter: 2021Q4

REPORT INFORMATION
  Report Type: Spontaneous
  Country: US (occurrence: US)
  Receive Date: 20210827
  Receipt Date: 20211230
  Transmission Date: 20220303
  Serious: Yes (Other)
  Sender: FDA-Public Use
  Company Number: US-STRONGBRIDGE BIOPHARMA-2021-STR-000291

PATIENT
  Age: 49 Year
  Sex: Female

DRUGS (6)
  1. KEVEYIS [Suspect]
     Active Substance: DICHLORPHENAMIDE
     Indication: Familial periodic paralysis
     Dosage: 25 MG, BID
     Route: 048
     Dates: start: 20190921
  2. KEVEYIS [Suspect]
     Active Substance: DICHLORPHENAMIDE
     Dosage: 75 MG, QD
     Route: 048
  3. PROGESTERONE [Concomitant]
     Active Substance: PROGESTERONE
     Indication: Hyperhidrosis
     Route: 048
  4. PROGESTERONE [Concomitant]
     Active Substance: PROGESTERONE
     Indication: Familial periodic paralysis
  5. PROGESTERONE [Concomitant]
     Active Substance: PROGESTERONE
     Indication: Hormone therapy
  6. VITAMIN D NOS [Concomitant]
     Active Substance: VITAMIN D NOS
     Indication: Product used for unknown indication
     Dosage: 2000 IU, QD
     Route: 065

REACTIONS (23)
  - Intracranial pressure increased [Unknown]
  - Post concussion syndrome [Unknown]
  - Visual impairment [Unknown]
  - Vision blurred [Unknown]
  - Aphasia [Unknown]
  - Hair texture abnormal [Unknown]
  - Eye movement disorder [Unknown]
  - Joint injury [Unknown]
  - Back injury [Unknown]
  - Head injury [Unknown]
  - COVID-19 [Unknown]
  - Head injury [Unknown]
  - Migraine [Unknown]
  - Neck pain [Unknown]
  - Contusion [Unknown]
  - Hypertension [Unknown]
  - Cerebral disorder [Unknown]
  - Cerebral vasoconstriction [Unknown]
  - Headache [Unknown]
  - Fall [Unknown]
  - Fall [Unknown]
  - Muscular weakness [Unknown]
  - Wrong technique in product usage process [Unknown]

NARRATIVE: CASE EVENT DATE: 20210201
